FAERS Safety Report 6496555-6 (Version None)
Quarter: 2009Q4

REPORT INFORMATION
  Report Type: 
  Country: None (occurrence: None)
  Receive Date: 20091210
  Receipt Date: 20091125
  Transmission Date: 20100525
  Serious: Yes (Hospitalization, Other)
  Sender: FDA-Public Use
  Company Number: AUR-APL-2009-01422

PATIENT
  Age: 9 Year
  Sex: Female

DRUGS (3)
  1. CEFTRIAXONE [Suspect]
     Indication: MENINGOCOCCAL SEPSIS
     Dosage: IV
     Route: 042
  2. IBUPROFEN [Suspect]
     Indication: MENINGOCOCCAL SEPSIS
     Dosage: ORAL
     Route: 048
  3. PARACETAMOL [Suspect]
     Indication: MENINGOCOCCAL SEPSIS

REACTIONS (6)
  - DEHYDRATION [None]
  - HYDRONEPHROSIS [None]
  - RENAL FAILURE [None]
  - RENAL PAPILLARY NECROSIS [None]
  - SEPSIS [None]
  - URETERIC OBSTRUCTION [None]
